FAERS Safety Report 8890092 (Version 1)
Quarter: 2012Q4

REPORT INFORMATION
  Report Type: 
  Country: DE (occurrence: JP)
  Receive Date: 20121107
  Receipt Date: 20121107
  Transmission Date: 20130627
  Serious: Yes (Other)
  Sender: FDA-Public Use
  Company Number: JP-BRISTOL-MYERS SQUIBB COMPANY-17099045

PATIENT
  Age: 35 Year
  Sex: Female

DRUGS (1)
  1. METGLUCO [Suspect]
     Indication: DIABETES MELLITUS
     Route: 048
     Dates: start: 20110507

REACTIONS (3)
  - Abortion [Recovered/Resolved]
  - Pregnancy [Recovered/Resolved]
  - Hypoglycaemia [Recovered/Resolved]
